FAERS Safety Report 12068022 (Version 1)
Quarter: 2016Q1

REPORT INFORMATION
  Report Type: Spontaneous
  Country: US (occurrence: US)
  Receive Date: 20160211
  Receipt Date: 20160211
  Transmission Date: 20160526
  Serious: No
  Sender: FDA-Public Use
  Company Number: US-SMITH AND NEPHEW, INC-2015SMT00247

PATIENT
  Sex: Female
  Weight: 99.32 kg

DRUGS (4)
  1. REGRANEX [Suspect]
     Active Substance: BECAPLERMIN
     Dosage: UNK, 2X/DAY
     Dates: start: 201508
  2. LONG ACTING INSULIN [Concomitant]
     Active Substance: INSULIN NOS
     Dosage: 20 IU, 1X/DAY
  3. REGRANEX [Suspect]
     Active Substance: BECAPLERMIN
     Indication: WOUND
     Dosage: UNK
     Route: 061
     Dates: start: 201505, end: 20150803
  4. METFORMIN [Concomitant]
     Active Substance: METFORMIN HYDROCHLORIDE
     Dosage: 500 MG, 2X/DAY

REACTIONS (2)
  - Inappropriate schedule of drug administration [Not Recovered/Not Resolved]
  - Application site infection [Not Recovered/Not Resolved]

NARRATIVE: CASE EVENT DATE: 2015
